FAERS Safety Report 9447697 (Version 2)
Quarter: 2014Q2

REPORT INFORMATION
  Report Type: Spontaneous
  Country: JP (occurrence: None)
  Receive Date: 20130805
  Receipt Date: 20140418
  Transmission Date: 20141212
  Serious: Yes (Other)
  Sender: FDA-Public Use
  Company Number: VAL_02650_2013

PATIENT
  Age: 81 Year
  Sex: Female
  Weight: 37 kg

DRUGS (3)
  1. METOPROLOL (METOPROLOL) [Suspect]
     Indication: PRODUCT USED FOR UNKNOWN INDICATION
     Route: 048
  2. HEPARIN [Concomitant]
  3. ANTICOAGULANT CIT PHOS DEX ADENINE [Concomitant]

REACTIONS (1)
  - Heparin-induced thrombocytopenia [None]
